FAERS Safety Report 21814735 (Version 1)
Quarter: 2023Q1

REPORT INFORMATION
  Report Type: Spontaneous
  Country: CA (occurrence: CA)
  Receive Date: 20230104
  Receipt Date: 20230104
  Transmission Date: 20230417
  Serious: Yes (Hospitalization, Other)
  Sender: FDA-Public Use
  Company Number: CA-002147023-NVSC2022CA301077

PATIENT
  Age: 10 Year
  Sex: Female

DRUGS (7)
  1. METHOTREXATE SODIUM [Suspect]
     Active Substance: METHOTREXATE SODIUM
     Indication: Osteosarcoma
     Dosage: UNK, CYCLIC
     Route: 065
  2. METHOTREXATE SODIUM [Suspect]
     Active Substance: METHOTREXATE SODIUM
     Indication: Osteoporosis
  3. CISPLATIN [Suspect]
     Active Substance: CISPLATIN
     Indication: Osteosarcoma
     Dosage: UNK, CYCLIC (SINGLE DOSE VIAL) (SOLUTION INTRAVENOUS)
     Route: 042
  4. CISPLATIN [Suspect]
     Active Substance: CISPLATIN
     Indication: Osteoporosis
  5. DOXORUBICIN HYDROCHLORIDE [Suspect]
     Active Substance: DOXORUBICIN HYDROCHLORIDE
     Indication: Osteosarcoma
     Dosage: UNK, CYCLIC
     Route: 065
  6. DOXORUBICIN HYDROCHLORIDE [Suspect]
     Active Substance: DOXORUBICIN HYDROCHLORIDE
     Indication: Osteoporosis
  7. PAMIDRONIC ACID [Concomitant]
     Active Substance: PAMIDRONIC ACID
     Indication: Bone pain
     Dosage: UNK
     Route: 065

REACTIONS (5)
  - Renal impairment [Unknown]
  - Hypercalcaemia [Unknown]
  - Off label use [Unknown]
  - Condition aggravated [Unknown]
  - Drug clearance decreased [Unknown]
